FAERS Safety Report 19659969 (Version 1)
Quarter: 2021Q3

REPORT INFORMATION
  Report Type: Spontaneous
  Country: CN (occurrence: CN)
  Receive Date: 20210805
  Receipt Date: 20210805
  Transmission Date: 20211014
  Serious: Yes (Hospitalization, Other)
  Sender: FDA-Public Use
  Company Number: CN-009507513-2108CHN000105

PATIENT
  Age: 8 Month
  Sex: Female

DRUGS (7)
  1. TACROLIMUS. [Concomitant]
     Active Substance: TACROLIMUS
     Indication: IMMUNOSUPPRESSION
     Dosage: AN INITIAL DOSE OF 0.5 MG, Q12H
     Route: 048
     Dates: start: 2019
  2. IMIPENEM AND CILASTATIN [Suspect]
     Active Substance: CILASTATIN SODIUM\IMIPENEM
     Indication: ANTI-INFECTIVE THERAPY
     Dosage: UNK
     Dates: start: 2019
  3. MEROPENEM. [Suspect]
     Active Substance: MEROPENEM
     Indication: INFECTION
     Dosage: UNK
     Dates: start: 2019
  4. METHYLPREDNISOLONE SODIUM SUCCINATE. [Concomitant]
     Active Substance: METHYLPREDNISOLONE SODIUM SUCCINATE
     Indication: IMMUNOSUPPRESSION
     Dosage: INITIAL DOSE WAS 16 MG, Q12H, DAILY TOTAL AMOUNT DECREASED BY 4 MG UNTIL IT WAS CHANGED TO 5 MG, QD
     Route: 042
     Dates: start: 2019
  5. MICAFUNGIN SODIUM [Concomitant]
     Active Substance: MICAFUNGIN SODIUM
     Indication: ANTI-INFECTIVE THERAPY
     Dosage: 8 MILLIGRAM, QD
     Route: 042
     Dates: start: 2019
  6. ALPROSTADIL. [Concomitant]
     Active Substance: ALPROSTADIL
     Indication: ANTICOAGULANT THERAPY
     Dosage: 5 MICROGRAM, QD
     Dates: start: 2019
  7. CEFOPERAZONE SODIUM;SULBACTAM SODIUM [Concomitant]
     Active Substance: CEFOPERAZONE SODIUM\SULBACTAM SODIUM
     Indication: ANTI-INFECTIVE THERAPY
     Dosage: 0.5 GRAM, Q12H
     Route: 042
     Dates: start: 2019

REACTIONS (2)
  - Escherichia infection [Recovered/Resolved]
  - Abdominal infection [Recovered/Resolved]

NARRATIVE: CASE EVENT DATE: 20191205
